FAERS Safety Report 5226728-1 (Version None)
Quarter: 2007Q1

REPORT INFORMATION
  Report Type: 
  Country: None (occurrence: None)
  Receive Date: 20070129
  Receipt Date: 20070117
  Transmission Date: 20070707
  Serious: Yes (Hospitalization, Disabling)
  Sender: FDA-Public Use
  Company Number: SPVI-2007-00262

PATIENT
  Age: 49 Year
  Sex: Female

DRUGS (6)
  1. ADDERALL 10 [Suspect]
     Dosage: 15 MG, 3X/DAY:TID
     Dates: start: 20060101, end: 20061101
  2. OMEGA 3 FISH OIL (FISH OIL) [Concomitant]
  3. CENTRUM SILVER (ASCORBIC ACID, CALCIUM, MINERALS NOS, RETINOL, TOCOPHE [Concomitant]
  4. PAXIL [Concomitant]
  5. GARLIC [Concomitant]
  6. ASCORBIC ACID [Concomitant]

REACTIONS (1)
  - CARDIAC FAILURE [None]
